FAERS Safety Report 23870392 (Version 3)
Quarter: 2024Q3

REPORT INFORMATION
  Report Type: Other
  Country: US (occurrence: US)
  Receive Date: 20240518
  Receipt Date: 20240917
  Transmission Date: 20241017
  Serious: Yes (Other)
  Sender: TRAVERE THERAPEUTICS
  Company Number: US-TRAVERE-2024TVT00465

PATIENT
  Age: 47 Year
  Sex: Female

DRUGS (2)
  1. FILSPARI [Suspect]
     Active Substance: SPARSENTAN
     Indication: Product used for unknown indication
     Dosage: SHE WAS TAKING 200MG 1 TABLET DAILY FOR 14 DAYS WITHOUT ISSUES. PATIENT INCREASED DOSE TO 2- 200MG T
     Route: 048
     Dates: start: 20240507
  2. FILSPARI [Suspect]
     Active Substance: SPARSENTAN
     Route: 048

REACTIONS (6)
  - Hernia [Unknown]
  - COVID-19 [Unknown]
  - Diplopia [Unknown]
  - Headache [Unknown]
  - Blood pressure decreased [Unknown]
  - Dizziness [Unknown]

NARRATIVE: CASE EVENT DATE: 20240821
